FAERS Safety Report 4831333-2 (Version None)
Quarter: 2005Q4

REPORT INFORMATION
  Report Type: 
  Country: None (occurrence: None)
  Receive Date: 20051116
  Receipt Date: 20051116
  Transmission Date: 20060501
  Serious: Yes (Hospitalization)
  Sender: FDA-Public Use
  Company Number: None

PATIENT
  Sex: Female
  Weight: 92.8 kg

DRUGS (8)
  1. IRINOTECAN  125MG/M2  PFIZER [Suspect]
     Indication: GLIOBLASTOMA MULTIFORME
     Dosage: 265MG IV (DAY 1, 8,22 AND 29)
     Route: 042
     Dates: start: 20051109
  2. BEVACIZUMAB 15MG/KG GENETECH [Suspect]
     Indication: GLIOBLASTOMA MULTIFORME
     Dosage: 1392MG IV (DAY 1 AND 22)
     Route: 042
     Dates: start: 20051109
  3. INSULIN [Concomitant]
  4. CITRUCEL [Concomitant]
  5. CELEXA [Concomitant]
  6. ZETIA [Concomitant]
  7. KEPPRA [Concomitant]
  8. LOVASTATIN [Concomitant]

REACTIONS (7)
  - GASTRITIS [None]
  - GASTRITIS HAEMORRHAGIC [None]
  - GASTROINTESTINAL HAEMORRHAGE [None]
  - HAEMATEMESIS [None]
  - HICCUPS [None]
  - MALIGNANT NEOPLASM PROGRESSION [None]
  - OESOPHAGITIS ULCERATIVE [None]
